FAERS Safety Report 6607440-0 (Version None)
Quarter: 2010Q1

REPORT INFORMATION
  Report Type: 
  Country: None (occurrence: None)
  Receive Date: 20100301
  Receipt Date: 20100224
  Transmission Date: 20100710
  Serious: Yes (Life-Threatening)
  Sender: FDA-Public Use
  Company Number: US-CUBIST-2009S1000538

PATIENT
  Age: 60 Year
  Sex: Female
  Weight: 70.8 kg

DRUGS (36)
  1. CUBICIN [Suspect]
     Indication: ENDOCARDITIS
     Dosage: DOSE UNIT:8 UNKNOWN
     Route: 042
     Dates: start: 20090904, end: 20090919
  2. CUBICIN [Suspect]
     Indication: DEVICE RELATED INFECTION
     Dosage: DOSE UNIT:8 UNKNOWN
     Route: 042
     Dates: start: 20090904, end: 20090919
  3. CUBICIN [Suspect]
     Indication: ENTEROCOCCAL INFECTION
     Dosage: DOSE UNIT:8 UNKNOWN
     Route: 042
     Dates: start: 20090904, end: 20090919
  4. CUBICIN [Suspect]
     Indication: OFF LABEL USE
     Dosage: DOSE UNIT:8 UNKNOWN
     Route: 042
     Dates: start: 20090904, end: 20090919
  5. CUBICIN [Suspect]
     Route: 042
     Dates: start: 20090904, end: 20090919
  6. CUBICIN [Suspect]
     Route: 042
     Dates: start: 20090904, end: 20090919
  7. CUBICIN [Suspect]
     Route: 042
     Dates: start: 20090904, end: 20090919
  8. CUBICIN [Suspect]
     Route: 042
     Dates: start: 20090904, end: 20090919
  9. VANCOMYCIN [Concomitant]
     Indication: DRUG USE FOR UNKNOWN INDICATION
  10. VANCOMYCIN [Concomitant]
  11. MEROPENEM [Concomitant]
     Indication: DRUG USE FOR UNKNOWN INDICATION
  12. POTASSIUM CHLORIDE [Concomitant]
  13. AMLODIPINE [Concomitant]
  14. ASPIRIN [Concomitant]
  15. ACETAMINOPHEN [Concomitant]
  16. ALBUTEROL [Concomitant]
  17. DEXTROSE [Concomitant]
  18. HYDRALAZINE HCL [Concomitant]
  19. NYSTATIN [Concomitant]
  20. CEFTRIAXONE [Concomitant]
     Dates: start: 20090916, end: 20090920
  21. CEPHALEXIN [Concomitant]
  22. OXYCODONE [Concomitant]
     Dates: start: 20090919
  23. DARBEPOETIN ALFA [Concomitant]
     Dosage: DOSE UNIT:60
  24. DEXTROSE [Concomitant]
  25. ESCITALOPRAM [Concomitant]
  26. HEPARIN [Concomitant]
     Dosage: DOSE UNIT:50
  27. INSULIN [Concomitant]
  28. IRON [Concomitant]
  29. LEVETIRACETAM [Concomitant]
  30. LEVOTHYROXINE [Concomitant]
  31. METOPROLOL TARTRATE [Concomitant]
  32. PREDNISONE [Concomitant]
  33. SALMETEROL [Concomitant]
  34. SODIUM [Concomitant]
  35. SODIUM [Concomitant]
  36. TACROLIMUS [Concomitant]

REACTIONS (2)
  - CONVULSION [None]
  - HYPONATRAEMIA [None]
